FAERS Safety Report 8741679 (Version 2)
Quarter: 2013Q4

REPORT INFORMATION
  Report Type: Report from Study
  Country: US (occurrence: US)
  Receive Date: 20120824
  Receipt Date: 20131101
  Transmission Date: 20140711
  Serious: Yes (Hospitalization)
  Sender: FDA-Public Use
  Company Number: US-BIOGENIDEC-2012BI032513

PATIENT
  Age: 65 Year
  Sex: Female
  Weight: 108 kg

DRUGS (7)
  1. TYSABRI [Suspect]
     Indication: MULTIPLE SCLEROSIS
     Route: 042
     Dates: start: 20081103, end: 20120607
  2. VESICARE [Concomitant]
     Indication: INCONTINENCE
  3. VICODIN ES [Concomitant]
     Indication: PAIN
  4. ZOLOFT [Concomitant]
     Indication: DEPRESSION
  5. GLUCOPHAGE [Concomitant]
     Indication: DIABETES MELLITUS
  6. NORVASC [Concomitant]
     Indication: HYPERTENSION
  7. HYDRALAZINE [Concomitant]
     Indication: HYPERTENSION

REACTIONS (1)
  - Gastrointestinal haemorrhage [Recovered/Resolved]
